FAERS Safety Report 9702895 (Version 2)
Quarter: 2013Q4

REPORT INFORMATION
  Report Type: Spontaneous
  Country: US (occurrence: None)
  Receive Date: 20131120
  Receipt Date: 20131120
  Transmission Date: 20140711
  Serious: Yes (Other)
  Sender: FDA-Public Use
  Company Number: 2013-US-003084

PATIENT
  Age: 58 Year
  Sex: Female
  Weight: 57.1 kg

DRUGS (3)
  1. XYREM [Suspect]
     Indication: NARCOLEPSY
     Route: 048
     Dates: start: 201107, end: 2011
  2. XYREM [Suspect]
     Indication: FIBROMYALGIA
     Route: 048
     Dates: start: 201107, end: 2011
  3. HIGH BLOOD PRESSURE MEDICATIONS (ANTIHYPERTENSIVES) [Concomitant]

REACTIONS (6)
  - Toe operation [None]
  - Arthrodesis [None]
  - Joint surgery [None]
  - Weight decreased [None]
  - Consciousness fluctuating [None]
  - Confusional state [None]
